FAERS Safety Report 21860106 (Version 2)
Quarter: 2023Q1

REPORT INFORMATION
  Report Type: Report from Study
  Country: US (occurrence: US)
  Receive Date: 20230113
  Receipt Date: 20230216
  Transmission Date: 20230418
  Serious: Yes (Other)
  Sender: FDA-Public Use
  Company Number: US-PFIZER INC-PV202300007039

PATIENT
  Age: 78 Year
  Sex: Female
  Weight: 52.154 kg

DRUGS (4)
  1. DOFETILIDE [Suspect]
     Active Substance: DOFETILIDE
     Dosage: 125 MG, 2X/DAY
  2. TYVASO [Suspect]
     Active Substance: TREPROSTINIL
     Indication: Pulmonary arterial hypertension
     Dosage: 54 UG, 4X/DAY (54 UG (9 BREATHS), FOUR TIMES A DAY (QID) VIA INHALATION (IH) ROUTE)
     Route: 055
     Dates: start: 20210302
  3. REVATIO [Concomitant]
     Active Substance: SILDENAFIL CITRATE
     Dosage: UNK
  4. DILTIAZEM HYDROCHLORIDE [Concomitant]
     Active Substance: DILTIAZEM HYDROCHLORIDE
     Dosage: UNK

REACTIONS (3)
  - Depression suicidal [Unknown]
  - Loss of consciousness [Unknown]
  - Wrong strength [Unknown]
